FAERS Safety Report 5828190-4 (Version None)
Quarter: 2008Q3

REPORT INFORMATION
  Report Type: 
  Country: None (occurrence: None)
  Receive Date: 20080731
  Receipt Date: 20080729
  Transmission Date: 20090109
  Serious: Yes (Hospitalization, Other)
  Sender: FDA-Public Use
  Company Number: US-BRISTOL-MYERS SQUIBB COMPANY-13908009

PATIENT
  Age: 20 Year
  Sex: Male

DRUGS (9)
  1. MEGESTROL ACETATE [Suspect]
     Indication: NEOPLASM MALIGNANT
  2. METHOTREXATE [Suspect]
  3. IFOSFAMIDE [Suspect]
  4. DOXORUBICIN HCL [Suspect]
  5. MORPHINE [Suspect]
  6. TRIMETHOPRIM + SULFAMETHOXAZOLE [Suspect]
  7. GEMCITABINE [Suspect]
  8. RADIATION THERAPY [Suspect]
  9. FLUCONAZOLE [Suspect]

REACTIONS (15)
  - ABDOMINAL MASS [None]
  - ABDOMINAL PAIN [None]
  - ADRENAL INSUFFICIENCY [None]
  - ANAEMIA [None]
  - BLOOD TESTOSTERONE DECREASED [None]
  - DEPRESSED MOOD [None]
  - ERYTHEMA [None]
  - HEART RATE INCREASED [None]
  - HYPOALBUMINAEMIA [None]
  - HYPONATRAEMIA [None]
  - MELAENA [None]
  - OEDEMA PERIPHERAL [None]
  - ORAL CANDIDIASIS [None]
  - PYREXIA [None]
  - THROMBOCYTOPENIA [None]
